FAERS Safety Report 9201248 (Version 1)
Quarter: 2013Q2

REPORT INFORMATION
  Report Type: Spontaneous
  Country: US (occurrence: US)
  Receive Date: 20130401
  Receipt Date: 20130401
  Transmission Date: 20140414
  Serious: No
  Sender: FDA-Public Use
  Company Number: US-BAYER-2013-039035

PATIENT
  Age: 50 Year
  Sex: Female

DRUGS (9)
  1. BETASERON [Suspect]
     Dosage: 0.25 ML, QOD
     Route: 058
  2. NAPROXEN [Concomitant]
     Dosage: 250 MG, UNK
  3. SEROQUEL [Concomitant]
  4. CLONAZEPAM [Concomitant]
     Dosage: 1 MG, UNK
  5. NEURONTIN [Concomitant]
     Dosage: 100 MG, UNK
  6. FLEXERIL [Concomitant]
     Dosage: 5 MG, UNK
  7. OXYCONTIN [Concomitant]
     Dosage: 10 MG, UNK
  8. OXYCODONE [Concomitant]
     Dosage: 5 MG, UNK
  9. SALAGEN [Concomitant]
     Dosage: 5 MG, UNK

REACTIONS (3)
  - Influenza like illness [Unknown]
  - Pyrexia [Unknown]
  - Hyperhidrosis [Unknown]
